FAERS Safety Report 8381030-4 (Version None)
Quarter: 2012Q2

REPORT INFORMATION
  Report Type: 
  Country: None (occurrence: None)
  Receive Date: 20120522
  Receipt Date: 20110303
  Transmission Date: 20120825
  Serious: No
  Sender: FDA-Public Use
  Company Number: 2011-00980

PATIENT
  Sex: Female

DRUGS (1)
  1. THERACYS [Suspect]
     Indication: BLADDER CANCER
     Dates: start: 20110303, end: 20110303

REACTIONS (2)
  - EYE IRRITATION [None]
  - EXPOSURE TO BODY FLUID [None]
